FAERS Safety Report 22181515 (Version 1)
Quarter: 2023Q2

REPORT INFORMATION
  Report Type: Spontaneous
  Country: FI (occurrence: None)
  Receive Date: 20230406
  Receipt Date: 20230406
  Transmission Date: 20230722
  Serious: Yes (Hospitalization)
  Sender: FDA-Public Use
  Company Number: 2023A075372

PATIENT
  Age: 80 Year
  Sex: Female

DRUGS (19)
  1. ROSUVASTATIN [Suspect]
     Active Substance: ROSUVASTATIN
     Route: 048
  2. TICAGRELOR [Suspect]
     Active Substance: TICAGRELOR
     Route: 048
  3. ASPIRIN [Concomitant]
     Active Substance: ASPIRIN
  4. BISOPROLOL [Concomitant]
     Active Substance: BISOPROLOL
  5. CALCIUM CARBONATE\CHOLECALCIFEROL [Concomitant]
     Active Substance: CALCIUM CARBONATE\CHOLECALCIFEROL
     Dosage: CALCIUM CARBONATE 500 MG + CHOLECALCIFEROL 100 UG: 1 X 1
  6. DULOXETINE [Concomitant]
     Active Substance: DULOXETINE
  7. EZETIMIBE [Concomitant]
     Active Substance: EZETIMIBE
  8. FENTANYL [Concomitant]
     Active Substance: FENTANYL
     Dosage: 100 UG/H T.D.
  9. GABAPENTIN [Concomitant]
     Active Substance: GABAPENTIN
     Dosage: 400 MG + 800 MG
  10. HYDROXYCHLOROQUINE [Concomitant]
     Active Substance: HYDROXYCHLOROQUINE
  11. HYDROXOCOBALAMIN [Concomitant]
     Active Substance: HYDROXOCOBALAMIN
     Dosage: 1 MG ONCE EVERY THREE MONTHS
     Route: 030
  12. ISOSORBIDE MONONITRATE [Concomitant]
     Active Substance: ISOSORBIDE MONONITRATE
     Route: 030
  13. POLYETHYLENE GLYCOLS [Concomitant]
     Active Substance: POLYETHYLENE GLYCOLS
  14. MULTIVITAMIN WITH LACTOBACILLUS REUTERI [Concomitant]
  15. PANTOPRAZOLE [Concomitant]
     Active Substance: PANTOPRAZOLE
  16. PREDNISOLONE [Concomitant]
     Active Substance: PREDNISOLONE
  17. RAMIPRIL [Concomitant]
     Active Substance: RAMIPRIL
  18. VILDAGLIPTIN [Concomitant]
     Active Substance: VILDAGLIPTIN
  19. ZOPICLONE [Concomitant]
     Active Substance: ZOPICLONE

REACTIONS (2)
  - Drug interaction [Unknown]
  - Rhabdomyolysis [Recovered/Resolved]
